FAERS Safety Report 7648365-1 (Version None)
Quarter: 2011Q3

REPORT INFORMATION
  Report Type: 
  Country: None (occurrence: None)
  Receive Date: 20110801
  Receipt Date: 20110725
  Transmission Date: 20111222
  Serious: Yes (Hospitalization)
  Sender: FDA-Public Use
  Company Number: CA-BAYER-2011-064405

PATIENT
  Age: 18 Year
  Sex: Female
  Weight: 54 kg

DRUGS (2)
  1. YAZ [Suspect]
  2. LITHIUM CARBONATE [Interacting]
     Dosage: DAILY DOSE 1050 MG/KG

REACTIONS (2)
  - DRUG INTERACTION [None]
  - TOXICITY TO VARIOUS AGENTS [None]
